FAERS Safety Report 7660550-1 (Version None)
Quarter: 2011Q3

REPORT INFORMATION
  Report Type: 
  Country: None (occurrence: None)
  Receive Date: 20110805
  Receipt Date: 20101028
  Transmission Date: 20111222
  Serious: No
  Sender: FDA-Public Use
  Company Number: US-ABBOTT-10P-163-0682150-00

PATIENT
  Sex: Male
  Weight: 73.548 kg

DRUGS (5)
  1. MAGNESIUM/POTASSIUM [Concomitant]
     Indication: MEDICAL DIET
     Route: 048
  2. NIASPAN [Suspect]
     Indication: BLOOD CHOLESTEROL INCREASED
     Route: 048
     Dates: start: 20101021
  3. MULTI-VITAMIN [Concomitant]
     Indication: MEDICAL DIET
     Route: 048
  4. VITAMIN B [Concomitant]
     Indication: MEDICAL DIET
     Route: 048
  5. ALKALYZED WATER [Concomitant]
     Indication: MEDICAL DIET
     Route: 048

REACTIONS (1)
  - PARAESTHESIA [None]
